FAERS Safety Report 25780363 (Version 1)
Quarter: 2025Q3

REPORT INFORMATION
  Report Type: Spontaneous
  Country: US (occurrence: US)
  Receive Date: 20250909
  Receipt Date: 20250909
  Transmission Date: 20251021
  Serious: No
  Sender: SANOFI AVENTIS
  Company Number: US-SA-2025SA266513

PATIENT
  Sex: Female

DRUGS (12)
  1. DUPIXENT [Suspect]
     Active Substance: DUPILUMAB
     Indication: Eosinophilic oesophagitis
     Dosage: 300 MG, QW
     Route: 058
  2. CYANOCOBALAMIN [Concomitant]
     Active Substance: CYANOCOBALAMIN
  3. LIOTHYRONINE [Concomitant]
     Active Substance: LIOTHYRONINE
  4. RECLAST [Concomitant]
     Active Substance: ZOLEDRONIC ACID
  5. SKYRIZI [Concomitant]
     Active Substance: RISANKIZUMAB-RZAA
  6. ASPIRIN [Concomitant]
     Active Substance: ASPIRIN
  7. DULOXETINE HYDROCHLORIDE [Concomitant]
     Active Substance: DULOXETINE HYDROCHLORIDE
  8. LOSARTAN POTASSIUM [Concomitant]
     Active Substance: LOSARTAN POTASSIUM
  9. NITROGLYCERIN [Concomitant]
     Active Substance: NITROGLYCERIN
  10. ROSUVASTATIN [Concomitant]
     Active Substance: ROSUVASTATIN
  11. SPIRONOLACTONE [Concomitant]
     Active Substance: SPIRONOLACTONE
  12. TRAZODONE HCL [Concomitant]
     Active Substance: TRAZODONE HYDROCHLORIDE

REACTIONS (7)
  - Cough [Not Recovered/Not Resolved]
  - Psoriasis [Not Recovered/Not Resolved]
  - Constipation [Not Recovered/Not Resolved]
  - Oropharyngeal pain [Not Recovered/Not Resolved]
  - Injection site pain [Not Recovered/Not Resolved]
  - Dysphagia [Not Recovered/Not Resolved]
  - Therapeutic response shortened [Not Recovered/Not Resolved]
